FAERS Safety Report 15296156 (Version 2)
Quarter: 2018Q4

REPORT INFORMATION
  Report Type: Spontaneous
  Country: US (occurrence: US)
  Receive Date: 20180820
  Receipt Date: 20181004
  Transmission Date: 20190204
  Serious: Yes (Other)
  Sender: FDA-Public Use
  Company Number: US-BRISTOL-MYERS SQUIBB COMPANY-BMS-2018-073334

PATIENT
  Age: 77 Year
  Sex: Female
  Weight: 70.76 kg

DRUGS (1)
  1. ELIQUIS [Suspect]
     Active Substance: APIXABAN
     Indication: ATRIAL FIBRILLATION
     Dosage: 5 MG, BID
     Route: 048
     Dates: start: 201502

REACTIONS (6)
  - Drug interaction [Unknown]
  - Swelling face [Unknown]
  - Peripheral swelling [Unknown]
  - Hyperlipidaemia [Unknown]
  - Joint swelling [Unknown]
  - Atrial fibrillation [Unknown]

NARRATIVE: CASE EVENT DATE: 201702
